FAERS Safety Report 23937347 (Version 1)
Quarter: 2024Q2

REPORT INFORMATION
  Report Type: Spontaneous
  Country: DE (occurrence: DE)
  Receive Date: 20240604
  Receipt Date: 20240604
  Transmission Date: 20240715
  Serious: Yes (Death, Life-Threatening, Other)
  Sender: FDA-Public Use
  Company Number: None

PATIENT
  Sex: Male

DRUGS (1)
  1. NILOTINIB [Suspect]
     Active Substance: NILOTINIB
     Indication: Chronic myeloid leukaemia
     Dosage: 600 MG, QD
     Route: 048
     Dates: start: 202306, end: 202405

REACTIONS (3)
  - Cerebral ischaemia [Fatal]
  - Cerebral vascular occlusion [Fatal]
  - Cerebral vasoconstriction [Fatal]

NARRATIVE: CASE EVENT DATE: 20240502
